FAERS Safety Report 6254219-8 (Version None)
Quarter: 2009Q3

REPORT INFORMATION
  Report Type: 
  Country: None (occurrence: None)
  Receive Date: 20090702
  Receipt Date: 20090630
  Transmission Date: 20100115
  Serious: Yes (Other)
  Sender: FDA-Public Use
  Company Number: BE-ROXANE LABORATORIES, INC.-2009-RO-00638RO

PATIENT
  Age: 85 Year
  Sex: Female

DRUGS (2)
  1. LEVETIRACETAM [Suspect]
     Indication: CHARLES BONNET SYNDROME
     Dosage: 500 MG
  2. VALPROIC ACID [Concomitant]
     Indication: CHARLES BONNET SYNDROME
     Dosage: 300 MG

REACTIONS (1)
  - DRUG INEFFECTIVE [None]
